FAERS Safety Report 13382919 (Version 1)
Quarter: 2017Q1

REPORT INFORMATION
  Report Type: Spontaneous
  Country: RO (occurrence: RO)
  Receive Date: 20170329
  Receipt Date: 20170329
  Transmission Date: 20170429
  Serious: Yes (Hospitalization)
  Sender: FDA-Public Use
  Company Number: RO-HERITAGE PHARMACEUTICALS-2017HTG00063

PATIENT
  Age: 35 Year
  Sex: Female

DRUGS (2)
  1. ACYCLOVIR. [Suspect]
     Active Substance: ACYCLOVIR
     Indication: HERPES ZOSTER
     Dosage: 4 G, 1X/DAY
     Route: 048
  2. ACYCLOVIR. [Suspect]
     Active Substance: ACYCLOVIR
     Dosage: APPLIED TOPICALLY 5 TIMES PER DAY
     Route: 061

REACTIONS (1)
  - Dermatitis contact [Recovered/Resolved]
